FAERS Safety Report 20711414 (Version 3)
Quarter: 2022Q2

REPORT INFORMATION
  Report Type: Report from Study
  Country: JP (occurrence: JP)
  Receive Date: 20220414
  Receipt Date: 20220517
  Transmission Date: 20220720
  Serious: Yes (Hospitalization, Other)
  Sender: FDA-Public Use
  Company Number: JP-TAKEDA-2021TUS024160

PATIENT
  Age: 29 Year
  Sex: Male

DRUGS (6)
  1. GUANFACINE HYDROCHLORIDE [Suspect]
     Active Substance: GUANFACINE HYDROCHLORIDE
     Indication: Attention deficit hyperactivity disorder
     Dosage: 2 MILLIGRAM, QD
     Route: 048
     Dates: start: 20210222, end: 20210307
  2. GUANFACINE HYDROCHLORIDE [Suspect]
     Active Substance: GUANFACINE HYDROCHLORIDE
     Indication: Sleep disorder
     Dosage: 3 MILLIGRAM, QD
     Route: 048
     Dates: start: 20210308, end: 20210315
  3. GUANFACINE HYDROCHLORIDE [Suspect]
     Active Substance: GUANFACINE HYDROCHLORIDE
     Indication: Irritable bowel syndrome
     Dosage: UNK UNK, QD
     Route: 048
     Dates: start: 20210316, end: 20210316
  4. GUANFACINE HYDROCHLORIDE [Suspect]
     Active Substance: GUANFACINE HYDROCHLORIDE
     Indication: Constipation
     Dosage: 2 MILLIGRAM, QD
     Route: 048
     Dates: start: 20210402, end: 20210408
  5. GUANFACINE HYDROCHLORIDE [Suspect]
     Active Substance: GUANFACINE HYDROCHLORIDE
     Indication: Eczema
     Dosage: 3 MILLIGRAM, QD
     Route: 048
     Dates: start: 20210409, end: 20210513
  6. GUANFACINE HYDROCHLORIDE [Suspect]
     Active Substance: GUANFACINE HYDROCHLORIDE
     Dosage: 4 MILLIGRAM, QD
     Route: 048
     Dates: start: 20210514

REACTIONS (4)
  - Intentional self-injury [Recovered/Resolved]
  - Dizziness [Recovered/Resolved]
  - Somnolence [Recovered/Resolved]
  - Intentional overdose [Unknown]

NARRATIVE: CASE EVENT DATE: 20210316
